FAERS Safety Report 4721242-1 (Version None)
Quarter: 2005Q3

REPORT INFORMATION
  Report Type: 
  Country: None (occurrence: None)
  Receive Date: 20050722
  Receipt Date: 20050713
  Transmission Date: 20060218
  Serious: Yes (Life-Threatening, Hospitalization, Other)
  Sender: FDA-Public Use
  Company Number: CA-JNJFOC-20050502785

PATIENT
  Sex: Male
  Weight: 96.7 kg

DRUGS (14)
  1. INFLIXIMAB [Suspect]
     Route: 042
  2. INFLIXIMAB [Suspect]
     Route: 042
  3. INFLIXIMAB [Suspect]
     Indication: RHEUMATOID ARTHRITIS
     Route: 042
  4. DIDROCAL [Concomitant]
  5. DIDROCAL [Concomitant]
  6. PREDNISONE [Concomitant]
     Route: 048
  7. PREDNISONE [Concomitant]
     Route: 048
  8. METHOTREXATE [Concomitant]
     Route: 058
  9. PERCOCET [Concomitant]
     Route: 048
  10. PERCOCET [Concomitant]
     Route: 048
  11. TYLENOL [Concomitant]
  12. ASPIRIN [Concomitant]
  13. ZOCOR [Concomitant]
  14. ASPIRIN [Concomitant]

REACTIONS (4)
  - ATRIAL FIBRILLATION [None]
  - CORONARY ARTERY DISEASE [None]
  - MYOCARDIAL INFARCTION [None]
  - RHEUMATOID ARTHRITIS [None]
